FAERS Safety Report 8479670-7 (Version None)
Quarter: 2012Q2

REPORT INFORMATION
  Report Type: 
  Country: None (occurrence: None)
  Receive Date: 20120629
  Receipt Date: 20120622
  Transmission Date: 20120825
  Serious: Yes (Hospitalization, Other)
  Sender: FDA-Public Use
  Company Number: CHPA2012US013462

PATIENT
  Sex: Female

DRUGS (2)
  1. VOLTAREN [Suspect]
     Indication: ARTHRALGIA
     Dosage: UNK, UNK
     Route: 061
     Dates: start: 20030101
  2. VOLTAREN [Suspect]
     Dosage: 2 G, TID
     Route: 061
     Dates: start: 20120101

REACTIONS (6)
  - OFF LABEL USE [None]
  - DRUG ADMINISTERED AT INAPPROPRIATE SITE [None]
  - WHEELCHAIR USER [None]
  - FALL [None]
  - UPPER LIMB FRACTURE [None]
  - THERAPEUTIC RESPONSE UNEXPECTED [None]
